FAERS Safety Report 6114379-6 (Version None)
Quarter: 2009Q1

REPORT INFORMATION
  Report Type: 
  Country: None (occurrence: None)
  Receive Date: 20090313
  Receipt Date: 20090309
  Transmission Date: 20090719
  Serious: Yes (Other)
  Sender: FDA-Public Use
  Company Number: FR-JNJFOC-20090302506

PATIENT
  Sex: Female

DRUGS (2)
  1. SPORANOX [Suspect]
     Indication: KERATOSIS FOLLICULAR
     Route: 065
  2. RETINOID [Concomitant]
     Indication: KERATOSIS FOLLICULAR
     Route: 065

REACTIONS (2)
  - BRONCHOPULMONARY ASPERGILLOSIS [None]
  - OFF LABEL USE [None]
